FAERS Safety Report 10365446 (Version 1)
Quarter: 2014Q3

REPORT INFORMATION
  Report Type: Spontaneous
  Country: JP (occurrence: JP)
  Receive Date: 20140806
  Receipt Date: 20140806
  Transmission Date: 20150326
  Serious: Yes (Other)
  Sender: FDA-Public Use
  Company Number: PHHY2013JP159722

PATIENT

DRUGS (2)
  1. NILOTINIB [Suspect]
     Active Substance: NILOTINIB
  2. GLIVEC [Suspect]
     Active Substance: IMATINIB MESYLATE

REACTIONS (2)
  - Diabetes mellitus [Unknown]
  - Decreased appetite [Unknown]
